FAERS Safety Report 9163800 (Version 1)
Quarter: 2013Q1

REPORT INFORMATION
  Report Type: Spontaneous
  Country: GB (occurrence: GB)
  Receive Date: 20130314
  Receipt Date: 20130314
  Transmission Date: 20140127
  Serious: Yes (Hospitalization)
  Sender: FDA-Public Use
  Company Number: GB-ASTRAZENECA-2013SE15394

PATIENT
  Sex: Female

DRUGS (5)
  1. OMEPRAZOLE [Suspect]
     Route: 048
  2. PROPRANOLOL [Suspect]
     Route: 048
  3. THIAMINE [Concomitant]
  4. VITAMIN B CO-STRONG [Concomitant]
     Dosage: 2 TDS
  5. SENNA [Concomitant]

REACTIONS (9)
  - Alcohol use [Unknown]
  - Feeling guilty [Unknown]
  - Obsessive-compulsive disorder [Unknown]
  - Gait disturbance [Unknown]
  - Confusional state [Unknown]
  - Hallucination [Unknown]
  - Depressed mood [Unknown]
  - Delusional perception [Unknown]
  - Thinking abnormal [Unknown]
